FAERS Safety Report 7396589-3 (Version None)
Quarter: 2011Q2

REPORT INFORMATION
  Report Type: 
  Country: None (occurrence: None)
  Receive Date: 20110406
  Receipt Date: 20110325
  Transmission Date: 20111010
  Serious: Yes (Hospitalization)
  Sender: FDA-Public Use
  Company Number: PHHY2011TR23006

PATIENT
  Sex: Female
  Weight: 48 kg

DRUGS (3)
  1. EVEROLIMUS [Suspect]
     Indication: IMMUNOSUPPRESSION
     Dosage: 2 MG,
     Route: 048
     Dates: start: 20110207
  2. MYFORTIC [Concomitant]
     Dosage: 2X360 MG
  3. MYFORTIC [Concomitant]
     Indication: IMMUNOSUPPRESSION
     Dosage: 2X720 MG
     Dates: start: 20110201

REACTIONS (3)
  - BONE MARROW FAILURE [None]
  - ANAEMIA [None]
  - DRUG INEFFECTIVE [None]
